FAERS Safety Report 22745884 (Version 4)
Quarter: 2023Q4

REPORT INFORMATION
  Report Type: Report from Study
  Country: US (occurrence: US)
  Receive Date: 20230725
  Receipt Date: 20231128
  Transmission Date: 20240110
  Serious: Yes (Hospitalization)
  Sender: FDA-Public Use
  Company Number: US-002147023-NVSC2023US161605

PATIENT
  Sex: Female

DRUGS (2)
  1. KISQALI [Suspect]
     Active Substance: RIBOCICLIB
     Indication: Product used for unknown indication
     Dosage: UNK
     Route: 048
  2. KISQALI [Suspect]
     Active Substance: RIBOCICLIB
     Dosage: UNK
     Route: 065
     Dates: start: 20230817

REACTIONS (8)
  - Cardiac failure congestive [Unknown]
  - Renal failure [Unknown]
  - Pleural effusion [Unknown]
  - Pericardial effusion [Unknown]
  - Dyspnoea [Unknown]
  - Arthralgia [Unknown]
  - Decreased appetite [Unknown]
  - Nausea [Unknown]
